FAERS Safety Report 18186235 (Version 1)
Quarter: 2020Q3

REPORT INFORMATION
  Report Type: Spontaneous
  Country: US (occurrence: US)
  Receive Date: 20200822
  Receipt Date: 20200822
  Transmission Date: 20201103
  Serious: Yes (Other)
  Sender: FDA-Public Use
  Company Number: None

PATIENT
  Age: 69 Year
  Sex: Male
  Weight: 90 kg

DRUGS (1)
  1. ALBUTEROL SULFATE. [Suspect]
     Active Substance: ALBUTEROL SULFATE
     Indication: ASTHMA
     Dosage: ?          OTHER STRENGTH:MCG;QUANTITY:2 PUFF(S);OTHER FREQUENCY:AS NEEDED;?
     Route: 055
     Dates: start: 20200818, end: 20200822

REACTIONS (2)
  - Asthma [None]
  - Device delivery system issue [None]

NARRATIVE: CASE EVENT DATE: 20200820
